FAERS Safety Report 12375593 (Version 1)
Quarter: 2016Q2

REPORT INFORMATION
  Report Type: Spontaneous
  Country: ZA (occurrence: None)
  Receive Date: 20160516
  Receipt Date: 20160516
  Transmission Date: 20160815
  Serious: No
  Sender: FDA-Public Use
  Company Number: None

PATIENT
  Age: 36 Year
  Sex: Male
  Weight: 75 kg

DRUGS (3)
  1. VENTOLINE [Concomitant]
     Active Substance: ALBUTEROL
  2. MOXIFLOXACIN, 400 MG [Suspect]
     Active Substance: MOXIFLOXACIN
     Indication: ACUTE SINUSITIS
     Route: 048
  3. CORTICOSTEROID [Suspect]
     Active Substance: CORTICOSTEROID NOS

REACTIONS (3)
  - Photophobia [None]
  - Glaucoma [None]
  - Iridocyclitis [None]

NARRATIVE: CASE EVENT DATE: 20130406
